FAERS Safety Report 23397020 (Version 2)
Quarter: 2024Q1

REPORT INFORMATION
  Report Type: Spontaneous
  Country: ES (occurrence: ES)
  Receive Date: 20240112
  Receipt Date: 20240119
  Transmission Date: 20240410
  Serious: Yes (Death, Hospitalization)
  Sender: FDA-Public Use
  Company Number: ES-GILEAD-2023-0656842

PATIENT
  Sex: Male

DRUGS (7)
  1. CARBOPLATIN [Suspect]
     Active Substance: CARBOPLATIN
     Indication: Non-small cell lung cancer metastatic
     Dosage: 900 MG?ROUTE OF ADMIN: INTRAVENOUS?FORM OF ADMIN: INJECTION
     Dates: start: 20231221, end: 20231221
  2. PACLITAXEL [Suspect]
     Active Substance: PACLITAXEL
     Indication: Non-small cell lung cancer metastatic
     Dosage: 360 MG?FORM OF ADMIN-INJECTION?ROUTE OF ADMIN-INTRAVENOUS
     Dates: start: 20231221, end: 20231221
  3. ZIMBERELIMAB [Suspect]
     Active Substance: ZIMBERELIMAB
     Indication: Non-small cell lung cancer metastatic
     Dosage: 360 MG?FORM OF ADM-SOLUTION FOR INFUSION?ROA-INTRAVENOUS USE
     Dates: start: 20231221, end: 20231221
  4. DEXAMETHASONE [Concomitant]
     Active Substance: DEXAMETHASONE
     Indication: Premedication
     Dosage: ROUTE OF ADMIN: INTRAVENOUS
     Dates: start: 20231222, end: 20231223
  5. DEXAMETHASONE [Concomitant]
     Active Substance: DEXAMETHASONE
     Indication: Prophylaxis
     Dosage: ROUTE OF ADMIN: INTRAVENOUS
     Dates: start: 20231221, end: 20231221
  6. ESOMEPRAZOLE [Concomitant]
     Active Substance: ESOMEPRAZOLE
     Indication: Chronic gastritis
     Dosage: ROUTE OF ADMIN: ORAL
     Dates: start: 2018
  7. GRANISETRON [Concomitant]
     Active Substance: GRANISETRON
     Indication: Premedication
     Dosage: ROUTE OF ADMIN: INTRAVENOUS
     Dates: start: 20231221, end: 20231221

REACTIONS (1)
  - Febrile neutropenia [Fatal]

NARRATIVE: CASE EVENT DATE: 20231229
